FAERS Safety Report 10228853 (Version 1)
Quarter: 2014Q2

REPORT INFORMATION
  Report Type: Spontaneous
  Country: FR (occurrence: FR)
  Receive Date: 20140610
  Receipt Date: 20140610
  Transmission Date: 20141212
  Serious: Yes (Other)
  Sender: FDA-Public Use
  Company Number: FR-ASTRAZENECA-2014SE39988

PATIENT
  Sex: Male

DRUGS (3)
  1. XEROQUEL [Suspect]
     Indication: DEPRESSION
     Route: 048
  2. XEROQUEL [Suspect]
     Indication: DEPRESSION
     Route: 048
  3. EFFEXOR [Concomitant]

REACTIONS (1)
  - Deep vein thrombosis [Not Recovered/Not Resolved]
